FAERS Safety Report 8848306 (Version 1)
Quarter: 2012Q4

REPORT INFORMATION
  Report Type: 
  Country: TW (occurrence: TW)
  Receive Date: 20121018
  Receipt Date: 20121018
  Transmission Date: 20130627
  Serious: Yes (Hospitalization)
  Sender: FDA-Public Use
  Company Number: TW-MYLANLABS-2012S1020929

PATIENT
  Sex: Female

DRUGS (1)
  1. AMIODARONE [Suspect]
     Indication: VENTRICULAR ARRHYTHMIA
     Route: 065

REACTIONS (2)
  - Hypothyroidism [Unknown]
  - Ascites [Recovering/Resolving]
